FAERS Safety Report 9856254 (Version 2)
Quarter: 2014Q1

REPORT INFORMATION
  Report Type: Spontaneous
  Country: GB (occurrence: GB)
  Receive Date: 20140130
  Receipt Date: 20140217
  Transmission Date: 20141002
  Serious: Yes (Death)
  Sender: FDA-Public Use
  Company Number: PHFR2014GB000996

PATIENT
  Age: 71 Year
  Sex: Male

DRUGS (1)
  1. CLOZARIL [Suspect]
     Dosage: 25 MG, UNK
     Route: 048
     Dates: start: 20110817

REACTIONS (1)
  - Pneumonia aspiration [Fatal]
